FAERS Safety Report 12451197 (Version 1)
Quarter: 2016Q2

REPORT INFORMATION
  Report Type: Spontaneous
  Country: AT (occurrence: AT)
  Receive Date: 20160609
  Receipt Date: 20160609
  Transmission Date: 20160815
  Serious: Yes (Hospitalization)
  Sender: FDA-Public Use
  Company Number: AT-009507513-1606AUT000579

PATIENT
  Age: 81 Year
  Sex: Female
  Weight: 106.5 kg

DRUGS (15)
  1. MOVICOL [Concomitant]
     Active Substance: POLYETHYLENE GLYCOL 3350\POTASSIUM CHLORIDE\SODIUM BICARBONATE\SODIUM CHLORIDE
     Dosage: UNK UNK, PRN
  2. NOVALGIN (ACETAMINOPHEN (+) CAFFEINE (+) PROPYPHENAZONE) [Concomitant]
     Dosage: 20 GTT, IN CASE OF PAIN UP TO MAXIMUM OF 3 TIMES DAILY
  3. TEMESTA [Concomitant]
     Active Substance: LORAZEPAM
     Dosage: 1 MG, HS
  4. CIPRALEX [Concomitant]
     Active Substance: ESCITALOPRAM OXALATE
     Dosage: 10 MG, QAM
  5. METHIMAZOLE. [Concomitant]
     Active Substance: METHIMAZOLE
     Dosage: 10 MG, QAM
  6. TRAMABENE [Concomitant]
     Dosage: 100 MG, BID
  7. TORSEMIDE. [Concomitant]
     Active Substance: TORSEMIDE
     Dosage: 1 DOSAGE FORM (10 MG) IN THE MORNING, 1/2 DOSAGE FORM (5 MG) IN THE AFTERNOON
  8. MIRTABENE [Concomitant]
     Active Substance: MIRTAZAPINE
     Dosage: 30 MG, HS
  9. THROMBO ASS [Concomitant]
     Active Substance: ASPIRIN
     Dosage: 100 MG, QD
  10. DUROTIV [Concomitant]
     Dosage: 20 MG, QAM
  11. ZANIDIP [Concomitant]
     Active Substance: LERCANIDIPINE HYDROCHLORIDE
     Dosage: 10 MG, QAM
  12. KEYTRUDA [Suspect]
     Active Substance: PEMBROLIZUMAB
     Indication: MALIGNANT MELANOMA STAGE IV
     Dosage: 2 MG/KG BODY WEIGHT IN 3 WEEKS INTERVALS; 212 MG DURING 30 MINUTES
     Route: 042
     Dates: start: 20160318
  13. PRAMIPEXOLE. [Concomitant]
     Active Substance: PRAMIPEXOLE
     Dosage: 0.35 MG, QPM
  14. MAGNESIUM VERLA (MAGNESIUM ASPARTATE) [Concomitant]
     Dosage: 1 DF, QPM
  15. BISOPROLOL [Concomitant]
     Active Substance: BISOPROLOL
     Dosage: 1 DOSAGE FORM (5 MG) IN THE MORNING, 1/2 DOSAGE FORM (2.5 MG) IN THE EVENING

REACTIONS (1)
  - Gamma-glutamyltransferase increased [Unknown]

NARRATIVE: CASE EVENT DATE: 20160531
